FAERS Safety Report 7725103-5 (Version None)
Quarter: 2011Q3

REPORT INFORMATION
  Report Type: 
  Country: None (occurrence: None)
  Receive Date: 20110901
  Receipt Date: 20110901
  Transmission Date: 20111222
  Serious: Yes (Hospitalization, Other)
  Sender: FDA-Public Use
  Company Number: US-PFIZER INC-2011189780

PATIENT
  Sex: Male
  Weight: 86 kg

DRUGS (18)
  1. ADVAIR DISKUS 100/50 [Concomitant]
     Dosage: 250/50 MCG Q. 12 HOURS
     Route: 055
     Dates: start: 20091218
  2. ENALAPRIL [Concomitant]
     Dosage: 2.5 MG, 2X/DAY
     Route: 048
     Dates: start: 20081022, end: 20110624
  3. COMBIVENT [Concomitant]
     Dosage: 2 PUFFS TWICE A DAY
     Route: 055
     Dates: start: 20110401
  4. NOVOLOG [Concomitant]
     Dosage: 5 UNITS WITH MEALS
     Route: 058
     Dates: start: 20080411
  5. FLOMAX [Concomitant]
     Dosage: 0.4 MG, 1X/DAY
     Route: 048
     Dates: start: 20110625
  6. EPLERENONE [Suspect]
     Dosage: 25 MG, QOD
     Route: 048
     Dates: start: 20110624, end: 20110701
  7. LIPITOR [Concomitant]
     Dosage: 40 MG, DAILY
     Route: 048
     Dates: start: 20070101
  8. LANTUS [Concomitant]
     Dosage: 35 IU, AT NIGHT
     Route: 058
     Dates: start: 20081218
  9. PROSCAR [Concomitant]
     Dosage: 5 MG, 1X/DAY
     Route: 048
     Dates: start: 20110625
  10. LYRICA [Concomitant]
     Dosage: 50 MG, 3X/DAY
     Route: 048
     Dates: start: 20081218
  11. ASPIRIN [Concomitant]
     Dosage: 325 MG, DAILY
     Route: 048
     Dates: start: 20080411, end: 20110624
  12. STARLIX [Concomitant]
     Dosage: 120 MG, 3X/DAY
     Route: 048
     Dates: start: 20080411, end: 20110624
  13. CYMBALTA [Concomitant]
     Dosage: 60 MG, DAILY
     Route: 048
     Dates: start: 20060101
  14. METOLAZONE [Concomitant]
     Dosage: 5 MG, DAILY
     Route: 048
     Dates: start: 20070101, end: 20110624
  15. LASIX [Concomitant]
     Dosage: 80 MG, 1X/DAY
     Route: 048
     Dates: start: 20070101, end: 20110624
  16. METFORMIN [Concomitant]
     Dosage: 500 MG, 2X/DAY
     Route: 048
     Dates: start: 20081009, end: 20110624
  17. COREG [Concomitant]
     Dosage: 12.5 MG, 2X/DAY
     Route: 048
     Dates: start: 20070101
  18. AMBIEN [Concomitant]
     Dosage: 12.5 MG, AT BEDTIME
     Route: 048
     Dates: start: 20081218

REACTIONS (3)
  - HAEMATURIA [None]
  - SYNCOPE [None]
  - HYPOGLYCAEMIA [None]
